FAERS Safety Report 20340151 (Version 2)
Quarter: 2022Q1

REPORT INFORMATION
  Report Type: Other
  Country: IE (occurrence: IE)
  Receive Date: 20220117
  Receipt Date: 20220318
  Transmission Date: 20220423
  Serious: Yes (Hospitalization)
  Sender: FDA-Public Use
  Company Number: IE-Basilea Medical Ltd.-IE-BAS-21-00940

PATIENT
  Age: 28 Year
  Sex: Male

DRUGS (4)
  1. ISAVUCONAZOLE [Suspect]
     Active Substance: ISAVUCONAZOLE
     Indication: Product used for unknown indication
     Dosage: (200 MG IV EVERY EIGHT HOURS FOR TWO DAYS, THEN 200 MG ONCE DAILY ORALLY).
     Route: 042
  2. MYCOPHENOLATE MOFETIL [Suspect]
     Active Substance: MYCOPHENOLATE MOFETIL
     Indication: Lupus nephritis
     Route: 065
  3. ISAVUCONAZONIUM SULFATE [Suspect]
     Active Substance: ISAVUCONAZONIUM SULFATE
     Indication: Cutaneous mucormycosis
     Route: 048
  4. ISAVUCONAZONIUM SULFATE [Suspect]
     Active Substance: ISAVUCONAZONIUM SULFATE
     Route: 042

REACTIONS (8)
  - Pancytopenia [Unknown]
  - Hypogammaglobulinaemia [Unknown]
  - Chronic kidney disease [Unknown]
  - Opportunistic infection [Unknown]
  - Off label use [Unknown]
  - Cutaneous mucormycosis [Unknown]
  - Anaemia [Unknown]
  - Anaemia [Recovering/Resolving]
